FAERS Safety Report 5023578-6 (Version None)
Quarter: 2006Q2

REPORT INFORMATION
  Report Type: 
  Country: None (occurrence: None)
  Receive Date: 20060606
  Receipt Date: 20060525
  Transmission Date: 20061013
  Serious: Yes (Hospitalization)
  Sender: FDA-Public Use
  Company Number: E2090-00003-SPO-JP

PATIENT
  Age: 55 Year
  Sex: Female

DRUGS (2)
  1. ZONISAMIDE [Suspect]
     Indication: EPILEPSY
     Dosage: 200 MG, 2 IN 1 D, ORAL
     Route: 048
     Dates: start: 20060409, end: 20060503
  2. LOXONIN (LOXOPROFEN SODIUM) [Concomitant]

REACTIONS (3)
  - LEUKOPENIA [None]
  - MALAISE [None]
  - PYREXIA [None]
